FAERS Safety Report 4319099-6 (Version None)
Quarter: 2004Q1

REPORT INFORMATION
  Report Type: 
  Country: None (occurrence: None)
  Receive Date: 20040316
  Receipt Date: 20040227
  Transmission Date: 20041129
  Serious: Yes (Other)
  Sender: FDA-Public Use
  Company Number: J200401104

PATIENT
  Age: 76 Year
  Sex: Female

DRUGS (3)
  1. MYSLEE - (ZOLPIDEM) - TABLET - 10MG [Suspect]
     Indication: INSOMNIA
     Dosage: 10 MG
     Route: 048
     Dates: start: 20030407, end: 20030427
  2. SILECE (FLUNITRAZEPAM) [Concomitant]
  3. LAXOBERON (SODIUM PICOSULFATE) [Concomitant]

REACTIONS (1)
  - PNEUMONIA ASPIRATION [None]
